FAERS Safety Report 8789380 (Version 1)
Quarter: 2012Q4

REPORT INFORMATION
  Report Type: Spontaneous
  Country: US (occurrence: None)
  Receive Date: 20120910
  Receipt Date: 20120910
  Transmission Date: 20130627
  Serious: Yes (Hospitalization)
  Sender: FDA-Public Use
  Company Number: None

PATIENT
  Sex: Female
  Weight: 57.7 kg

DRUGS (4)
  1. METHOTREXATE [Suspect]
  2. PROCARBAZINE [Suspect]
  3. RITUXIMAB [Suspect]
  4. VINCRISTINE SULFATE [Suspect]

REACTIONS (6)
  - Confusional state [None]
  - Pyrexia [None]
  - Headache [None]
  - Nausea [None]
  - Vomiting [None]
  - Urinary tract infection [None]
